FAERS Safety Report 23868941 (Version 2)
Quarter: 2024Q3

REPORT INFORMATION
  Report Type: Spontaneous
  Country: US (occurrence: US)
  Receive Date: 20240517
  Receipt Date: 20240723
  Transmission Date: 20241017
  Serious: No
  Sender: STEMLINE THERAPEUTICS
  Company Number: US-Stemline Therapeutics, Inc.-2024ST002347

PATIENT
  Age: 66 Year
  Sex: Female

DRUGS (1)
  1. ORSERDU [Suspect]
     Active Substance: ELACESTRANT
     Indication: Product used for unknown indication
     Route: 048
     Dates: start: 20240313

REACTIONS (12)
  - Bone cancer [Unknown]
  - Feeling abnormal [Unknown]
  - Pain [Unknown]
  - Liver disorder [Unknown]
  - Anxiety [Unknown]
  - Weight decreased [Unknown]
  - Discomfort [Unknown]
  - Nausea [Unknown]
  - Insomnia [Unknown]
  - Decreased appetite [Unknown]
  - Diarrhoea [Unknown]
  - Vomiting [Unknown]
